FAERS Safety Report 4304817-3 (Version None)
Quarter: 2004Q1

REPORT INFORMATION
  Report Type: 
  Country: None (occurrence: None)
  Receive Date: 20040226
  Receipt Date: 20031001
  Transmission Date: 20041129
  Serious: Yes (Hospitalization, Other)
  Sender: FDA-Public Use
  Company Number: PHBS2003JP10759

PATIENT
  Age: 60 Year
  Sex: Female
  Weight: 74 kg

DRUGS (7)
  1. DIOVAN [Suspect]
     Indication: HYPERTENSION
     Dosage: 80 MG, QD
     Route: 048
     Dates: start: 20020425
  2. MEVALOTIN [Suspect]
     Indication: HYPERCHOLESTEROLAEMIA
     Dosage: 5 MG, QD
     Route: 048
     Dates: start: 19891111
  3. CONIEL [Suspect]
     Indication: HYPERTENSION
     Dosage: 4 MG, BID
     Route: 048
     Dates: start: 19980903
  4. MAINTATE [Suspect]
     Indication: HYPERTENSION
     Dosage: 5 MG, BID
     Route: 048
     Dates: start: 19970904
  5. EBRANTIL [Suspect]
     Indication: HYPERTENSION
     Dosage: 30 MG, BID
     Route: 048
     Dates: start: 19950907
  6. BUFFERIN [Concomitant]
     Indication: LACUNAR INFARCTION
     Dosage: 81 MG/DAY
     Route: 048
     Dates: start: 19940928
  7. AZELASTINE HCL [Concomitant]
     Indication: URTICARIA CHRONIC
     Dosage: 1 MG/DAY
     Route: 048
     Dates: start: 20011224

REACTIONS (8)
  - BLOOD PRESSURE FLUCTUATION [None]
  - CEREBRAL INFARCTION [None]
  - DIZZINESS [None]
  - DRUG INEFFECTIVE [None]
  - GAIT DISTURBANCE [None]
  - HYPERTENSION [None]
  - LACUNAR INFARCTION [None]
  - NAUSEA [None]
